FAERS Safety Report 21303456 (Version 3)
Quarter: 2024Q1

REPORT INFORMATION
  Report Type: Spontaneous
  Country: CA (occurrence: CA)
  Receive Date: 20220907
  Receipt Date: 20240104
  Transmission Date: 20240410
  Serious: Yes (Other)
  Sender: FDA-Public Use
  Company Number: CA-PFIZER INC-202201135142

PATIENT
  Age: 24 Year
  Sex: Male
  Weight: 56.6 kg

DRUGS (5)
  1. XELJANZ [Suspect]
     Active Substance: TOFACITINIB CITRATE
     Indication: Colitis ulcerative
     Dosage: 10 MG, 2X/DAY
     Route: 048
     Dates: start: 20210525
  2. AZATHIOPRINE [Concomitant]
     Active Substance: AZATHIOPRINE
     Dosage: 1 DF, 1X/DAY DOSAGE INFO COULD NOT BE CAPTUREDDOSE 2.5 TABS OD
     Route: 048
  3. PREDNISONE [Concomitant]
     Active Substance: PREDNISONE
     Indication: Colitis ulcerative
     Dosage: 5 MG, DAILY
     Dates: start: 20220825
  4. FOLIC ACID [Concomitant]
     Active Substance: FOLIC ACID
     Dosage: 1000 UG, 1X/DAY
     Route: 048
  5. METHOTREXATE [Concomitant]
     Active Substance: METHOTREXATE
     Dosage: 20 MG, WEEKLY
     Route: 048

REACTIONS (5)
  - Haematochezia [Recovered/Resolved]
  - Loss of personal independence in daily activities [Unknown]
  - Impaired work ability [Unknown]
  - Condition aggravated [Unknown]
  - Frequent bowel movements [Unknown]
